FAERS Safety Report 25427738 (Version 1)
Quarter: 2025Q2

REPORT INFORMATION
  Report Type: Other
  Country: TR (occurrence: TR)
  Receive Date: 20250612
  Receipt Date: 20250612
  Transmission Date: 20250717
  Serious: Yes (Other)
  Sender: ESJAY PHARMA
  Company Number: TR-ESJAY PHARMA-000730

PATIENT
  Age: 74 Year
  Sex: Male

DRUGS (1)
  1. IMATINIB [Suspect]
     Active Substance: IMATINIB
     Indication: Chronic myeloid leukaemia

REACTIONS (1)
  - Acute kidney injury [Recovered/Resolved]
